FAERS Safety Report 5496992-2 (Version None)
Quarter: 2007Q4

REPORT INFORMATION
  Report Type: 
  Country: None (occurrence: None)
  Receive Date: 20071025
  Receipt Date: 20071019
  Transmission Date: 20080405
  Serious: Yes (Hospitalization)
  Sender: FDA-Public Use
  Company Number: US-AVENTIS-200717466US

PATIENT
  Age: 28 Year
  Sex: Female
  Weight: 90.3 kg

DRUGS (1)
  1. ALLEGRA                            /01314201/ [Suspect]
     Route: 048

REACTIONS (1)
  - SENSATION OF FOREIGN BODY [None]
